FAERS Safety Report 5537242-8 (Version None)
Quarter: 2007Q4

REPORT INFORMATION
  Report Type: 
  Country: None (occurrence: None)
  Receive Date: 20071207
  Receipt Date: 20071129
  Transmission Date: 20080405
  Serious: Yes (Life-Threatening, Hospitalization, Other)
  Sender: FDA-Public Use
  Company Number: US-JNJFOC-20071200626

PATIENT
  Sex: Male
  Weight: 112.49 kg

DRUGS (5)
  1. INFLIXIMAB [Suspect]
     Indication: CROHN'S DISEASE
     Route: 042
  2. MESALAMINE [Concomitant]
  3. NARCOTIC ANALGESIC [Concomitant]
  4. ANTIDEPRESSANT [Concomitant]
  5. PREDNISONE TAB [Concomitant]

REACTIONS (2)
  - FEBRILE NEUTROPENIA [None]
  - SMALL CELL LUNG CANCER STAGE UNSPECIFIED [None]
